FAERS Safety Report 6759506-2 (Version None)
Quarter: 2010Q2

REPORT INFORMATION
  Report Type: 
  Country: None (occurrence: None)
  Receive Date: 20100603
  Receipt Date: 20100518
  Transmission Date: 20101027
  Serious: Yes (Other)
  Sender: FDA-Public Use
  Company Number: A-US2010-36514

PATIENT
  Age: 59 Year
  Sex: Female

DRUGS (11)
  1. VENTAVIS [Suspect]
     Indication: PULMONARY ARTERIAL HYPERTENSION
     Dosage: 5 UG, 6 X DAY, RESPIRATORY
     Route: 055
     Dates: start: 20100309, end: 20100329
  2. SITAXSENTAN (SITAXENTAN) [Concomitant]
  3. SPIRONOLACTONE [Concomitant]
  4. ASPIRIN [Concomitant]
  5. RAMIPRIL [Concomitant]
  6. TROMCARDIN (ASPARTATE POTASSIUM, MAGNESIUM ASPARTATE) [Concomitant]
  7. PREDNISONE TAB [Concomitant]
  8. LEVOTHYROXINE SODIUM [Concomitant]
  9. MARCUMAR [Concomitant]
  10. OMEPRAZOLE [Concomitant]
  11. SPIRIVA [Concomitant]

REACTIONS (2)
  - CHEST PAIN [None]
  - EYE HAEMORRHAGE [None]
